FAERS Safety Report 9458745 (Version 1)
Quarter: 2013Q3

REPORT INFORMATION
  Report Type: Not Available
  Country: US (occurrence: US)
  Receive Date: 20130814
  Receipt Date: 20130814
  Transmission Date: 20140515
  Serious: No
  Sender: FDA-Public Use
  Company Number: US-TARO-2012P1054387

PATIENT
  Age: 71 Year
  Sex: Female
  Weight: 43.09 kg

DRUGS (6)
  1. FLUOCINONIDE [Suspect]
     Indication: RASH
     Route: 061
     Dates: start: 20120812, end: 20120812
  2. FLUOCINONIDE [Suspect]
     Indication: PRURITUS
     Route: 061
     Dates: start: 20120812, end: 20120812
  3. PRILOSEC [Concomitant]
  4. RED YEAST RICE [Concomitant]
  5. VITAMIN C [Concomitant]
  6. UBIQUINOL [Concomitant]

REACTIONS (7)
  - Drug ineffective [Not Recovered/Not Resolved]
  - Application site erythema [Recovering/Resolving]
  - Application site dryness [Recovering/Resolving]
  - Application site exfoliation [Recovering/Resolving]
  - Application site discomfort [Recovering/Resolving]
  - Application site discharge [Recovering/Resolving]
  - Product substitution issue [Not Recovered/Not Resolved]
